FAERS Safety Report 20136283 (Version 1)
Quarter: 2021Q4

REPORT INFORMATION
  Report Type: Spontaneous
  Country: US (occurrence: None)
  Receive Date: 20211130
  Receipt Date: 20211130
  Transmission Date: 20220303
  Serious: No
  Sender: FDA-Public Use
  Company Number: None

PATIENT
  Age: 26 Year
  Sex: Female
  Weight: 53.98 kg

DRUGS (5)
  1. AJOVY [Suspect]
     Active Substance: FREMANEZUMAB-VFRM
     Indication: Migraine
     Dosage: FREQUENCY : MONTHLY;?
     Route: 030
  2. LILETTA IUD BUPROPION XL [Concomitant]
  3. SUMATRIPTAN [Concomitant]
     Active Substance: SUMATRIPTAN
  4. ONDANSETRON [Concomitant]
     Active Substance: ONDANSETRON
  5. NAPROXEN (ALEVE) [Concomitant]

REACTIONS (2)
  - Injection site bruising [None]
  - Injection site mass [None]

NARRATIVE: CASE EVENT DATE: 20211111
